FAERS Safety Report 15405463 (Version 14)
Quarter: 2020Q1

REPORT INFORMATION
  Report Type: Report from Study
  Country: CA (occurrence: CA)
  Receive Date: 20180920
  Receipt Date: 20200228
  Transmission Date: 20200409
  Serious: Yes (Life-Threatening, Hospitalization, Disabling, Other)
  Sender: FDA-Public Use
  Company Number: CA-BRISTOL-MYERS SQUIBB COMPANY-BMS-2018-077116

PATIENT
  Age: 54 Year
  Sex: Female

DRUGS (2)
  1. ABATACEPT [Suspect]
     Active Substance: ABATACEPT
     Indication: SYSTEMIC LUPUS ERYTHEMATOSUS
     Dosage: 250 MILLIGRAM, Q4WK
     Route: 042
     Dates: start: 20140925
  2. ABATACEPT [Suspect]
     Active Substance: ABATACEPT
     Indication: RHEUMATOID ARTHRITIS
     Route: 065

REACTIONS (31)
  - Nodule [Not Recovered/Not Resolved]
  - Ocular discomfort [Unknown]
  - Pain in extremity [Unknown]
  - Intentional product use issue [Unknown]
  - Abdominal pain [Unknown]
  - Headache [Unknown]
  - Lumbar vertebral fracture [Unknown]
  - Pneumonia [Not Recovered/Not Resolved]
  - Pharyngitis streptococcal [Not Recovered/Not Resolved]
  - Deafness [Unknown]
  - Sepsis [Unknown]
  - Dysphagia [Unknown]
  - Haemoptysis [Unknown]
  - C-reactive protein increased [Unknown]
  - Oropharyngeal pain [Unknown]
  - Salivary gland cancer [Unknown]
  - Neck pain [Unknown]
  - Migraine with aura [Not Recovered/Not Resolved]
  - Weight decreased [Unknown]
  - Pain [Unknown]
  - Oral pain [Unknown]
  - Confusional state [Unknown]
  - Thyroid disorder [Unknown]
  - Product dose omission [Unknown]
  - White blood cell count increased [Unknown]
  - Circumstance or information capable of leading to medication error [Unknown]
  - Prescribed underdose [Unknown]
  - Spinal pain [Unknown]
  - Epistaxis [Unknown]
  - Arthralgia [Unknown]
  - Fatigue [Unknown]

NARRATIVE: CASE EVENT DATE: 20181010
